FAERS Safety Report 14510921 (Version 1)
Quarter: 2018Q1

REPORT INFORMATION
  Report Type: Spontaneous
  Country: US (occurrence: US)
  Receive Date: 20180209
  Receipt Date: 20180209
  Transmission Date: 20180509
  Serious: Yes (Life-Threatening, Hospitalization, Disabling, Other)
  Sender: FDA-Public Use
  Company Number: None

PATIENT
  Age: 49 Year
  Sex: Female
  Weight: 66.22 kg

DRUGS (8)
  1. HYDROCHLORIDE HYCHLOROTHIAZIDE [Concomitant]
  2. POLYELTHELENE GLYCOL [Concomitant]
  3. LINZESS [Concomitant]
     Active Substance: LINACLOTIDE
  4. AMITIZA [Concomitant]
     Active Substance: LUBIPROSTONE
  5. SUPREP BOWEL PREP [Concomitant]
     Active Substance: MAGNESIUM SULFATE\POTASSIUM SULFATE\SODIUM SULFATE
  6. NORTRIPTYLINE HCL 25MG CAPSULE [Suspect]
     Active Substance: NORTRIPTYLINE HYDROCHLORIDE
     Indication: PRODUCT USED FOR UNKNOWN INDICATION
     Dosage: AT BEDTIME 1 AT HS BY MOUTH
     Route: 048
     Dates: start: 20180202, end: 20180206
  7. LACTULOSE. [Concomitant]
     Active Substance: LACTULOSE
  8. MAGNESIUM CITRATE. [Concomitant]
     Active Substance: MAGNESIUM CITRATE

REACTIONS (9)
  - Nausea [None]
  - Abdominal pain upper [None]
  - Headache [None]
  - Heart rate increased [None]
  - Fatigue [None]
  - Asthenia [None]
  - Product quality issue [None]
  - Blood pressure increased [None]
  - Hepatic enzyme increased [None]

NARRATIVE: CASE EVENT DATE: 20180202
